FAERS Safety Report 16982160 (Version 1)
Quarter: 2019Q4

REPORT INFORMATION
  Report Type: Spontaneous
  Country: FR (occurrence: FR)
  Receive Date: 20191101
  Receipt Date: 20191101
  Transmission Date: 20200122
  Serious: Yes (Other)
  Sender: FDA-Public Use
  Company Number: FR-TEVA-2019-FR-1130326

PATIENT
  Age: 65 Year
  Sex: Male
  Weight: 81 kg

DRUGS (3)
  1. ONDANSETRON [Suspect]
     Active Substance: ONDANSETRON
     Indication: PROPHYLAXIS OF NAUSEA AND VOMITING
     Dosage: 8 MG
     Route: 048
     Dates: start: 201905
  2. TEMOZOLOMIDE. [Suspect]
     Active Substance: TEMOZOLOMIDE
     Indication: GLIOBLASTOMA
     Route: 048
     Dates: start: 20190304
  3. LEDERFOLINE [Suspect]
     Active Substance: LEUCOVORIN CALCIUM
     Indication: GLIOBLASTOMA
     Route: 048
     Dates: start: 20190304

REACTIONS (1)
  - Chest pain [Recovered/Resolved]

NARRATIVE: CASE EVENT DATE: 20190607
